FAERS Safety Report 14587514 (Version 1)
Quarter: 2018Q1

REPORT INFORMATION
  Report Type: Spontaneous
  Country: PL (occurrence: PL)
  Receive Date: 20180301
  Receipt Date: 20180301
  Transmission Date: 20180509
  Serious: Yes (Other)
  Sender: FDA-Public Use
  Company Number: PL-TEVA-2018-PL-861742

PATIENT
  Age: 3 Year
  Sex: Female

DRUGS (1)
  1. CECLOR [Suspect]
     Active Substance: CEFACLOR
     Dosage: STRAWBERRY FLAVOR

REACTIONS (9)
  - Generalised oedema [Unknown]
  - Inflammation [Unknown]
  - Diarrhoea [Unknown]
  - Pruritus [Not Recovered/Not Resolved]
  - Hypersensitivity [Unknown]
  - Vomiting [Unknown]
  - Rash generalised [Not Recovered/Not Resolved]
  - Burning sensation [Not Recovered/Not Resolved]
  - Urticaria [Not Recovered/Not Resolved]
